FAERS Safety Report 24031268 (Version 2)
Quarter: 2024Q3

REPORT INFORMATION
  Report Type: Report from Study
  Country: US (occurrence: US)
  Receive Date: 20240629
  Receipt Date: 20240705
  Transmission Date: 20241017
  Serious: Yes (Death, Hospitalization, Other)
  Sender: ABBVIE
  Company Number: US-ABBVIE-5819517

PATIENT
  Age: 80 Year
  Sex: Male

DRUGS (2)
  1. CREON [Suspect]
     Active Substance: PANCRELIPASE AMYLASE\PANCRELIPASE LIPASE\PANCRELIPASE PROTEASE
     Indication: Pancreatic failure
     Dosage: FORM STRENGTH: 24000 UNIT, FREQUENCY TEXT: 2 PER MEAL AND 1 PER SNACK
     Route: 048
     Dates: start: 2023
  2. CREON [Suspect]
     Active Substance: PANCRELIPASE AMYLASE\PANCRELIPASE LIPASE\PANCRELIPASE PROTEASE
     Indication: Pancreatic failure
     Dosage: FORM STRENGTH: 24000 UNIT, FREQUENCY TEXT: 3 PER MEAL AND 1 PER SNACK
     Route: 048

REACTIONS (10)
  - Pancreatic carcinoma [Fatal]
  - Gait inability [Not Recovered/Not Resolved]
  - Diarrhoea [Not Recovered/Not Resolved]
  - Weight decreased [Not Recovered/Not Resolved]
  - Muscular weakness [Not Recovered/Not Resolved]
  - Abdominal pain upper [Not Recovered/Not Resolved]
  - Malnutrition [Not Recovered/Not Resolved]
  - Hip fracture [Unknown]
  - Infection [Unknown]
  - Sepsis [Unknown]

NARRATIVE: CASE EVENT DATE: 20231001
